FAERS Safety Report 24452856 (Version 1)
Quarter: 2024Q4

REPORT INFORMATION
  Report Type: Spontaneous
  Country: US (occurrence: US)
  Receive Date: 20241017
  Receipt Date: 20241017
  Transmission Date: 20250115
  Serious: No
  Sender: SUNOVION
  Company Number: US-UROVANT SCIENCES GMBH-202404-URV-000626

PATIENT
  Age: 77 Year
  Sex: Female
  Weight: 71.655 kg

DRUGS (2)
  1. GEMTESA [Suspect]
     Active Substance: VIBEGRON
     Indication: Hypertonic bladder
     Dosage: 1 UNK, QD
     Route: 065
  2. GEMTESA [Suspect]
     Active Substance: VIBEGRON
     Dosage: 1 UNK, EVERY OTHER DAY
     Route: 065

REACTIONS (2)
  - Dry mouth [Recovering/Resolving]
  - Inappropriate schedule of product administration [Unknown]
